FAERS Safety Report 8998517 (Version 2)
Quarter: 2013Q4

REPORT INFORMATION
  Report Type: Report from Study
  Country: JP (occurrence: JP)
  Receive Date: 20130103
  Receipt Date: 20131206
  Transmission Date: 20140711
  Serious: Yes (Death, Hospitalization)
  Sender: FDA-Public Use
  Company Number: JP-ROCHE-1175734

PATIENT
  Age: 76 Year
  Sex: Male

DRUGS (3)
  1. ALTEPLASE [Suspect]
     Indication: THROMBOTIC CEREBRAL INFARCTION
     Route: 042
     Dates: start: 20120212, end: 20120212
  2. RADICUT [Concomitant]
     Dosage: TWICE
     Route: 065
     Dates: start: 20120212, end: 20120220
  3. ASPIRIN [Concomitant]

REACTIONS (2)
  - Lung neoplasm malignant [Fatal]
  - Pyrexia [Not Recovered/Not Resolved]
